FAERS Safety Report 10158213 (Version 1)
Quarter: 2014Q2

REPORT INFORMATION
  Report Type: Spontaneous
  Country: CA (occurrence: CA)
  Receive Date: 20140507
  Receipt Date: 20140507
  Transmission Date: 20141212
  Serious: Yes (Other)
  Sender: FDA-Public Use
  Company Number: CA-009507513-1405CAN002058

PATIENT
  Age: 3 Year
  Sex: Male
  Weight: 15 kg

DRUGS (4)
  1. NASONEX [Suspect]
     Dosage: 50 MG, 1 EVERY 1 DAY
     Route: 065
  2. ZENHALE [Suspect]
     Dosage: 2 DF, 2 EVERY 1 DAY
     Route: 065
  3. SINGULAIR [Concomitant]
  4. VENTOLIN (ALBUTEROL SULFATE) [Concomitant]

REACTIONS (1)
  - Blood cortisol decreased [Recovered/Resolved]
